FAERS Safety Report 8634010 (Version 2)
Quarter: 2012Q4

REPORT INFORMATION
  Report Type: 
  Country: BE (occurrence: BE)
  Receive Date: 20120626
  Receipt Date: 20121019
  Transmission Date: 20130627
  Serious: Yes (Other)
  Sender: FDA-Public Use
  Company Number: BE-UCBSA-059921

PATIENT
  Age: 32 Year
  Sex: Female

DRUGS (4)
  1. CERTOLIZUMAB PEGOL [Suspect]
     Indication: RHEUMATOID ARTHRITIS
     Route: 058
     Dates: start: 20120305, end: 20120611
  2. OMEPRAZOLE [Concomitant]
     Route: 048
  3. TRAMADOL [Concomitant]
     Route: 048
  4. MOTIFENE [Concomitant]
     Route: 048

REACTIONS (3)
  - C-reactive protein increased [Recovered/Resolved]
  - Hepatic enzyme increased [Recovered/Resolved]
  - Myalgia [Unknown]
